FAERS Safety Report 13542318 (Version 1)
Quarter: 2017Q2

REPORT INFORMATION
  Report Type: Spontaneous
  Country: US (occurrence: US)
  Receive Date: 20170512
  Receipt Date: 20170512
  Transmission Date: 20170830
  Serious: Yes (Other)
  Sender: FDA-Public Use
  Company Number: US-ROCHE-771080

PATIENT
  Age: 80 Year
  Sex: Female
  Weight: 70.3 kg

DRUGS (4)
  1. AVASTIN [Suspect]
     Active Substance: BEVACIZUMAB
     Indication: AGE-RELATED MACULAR DEGENERATION
     Dosage: INDICATION REPORTED AS ARMD WITH CRNM. DOSE: 0.05, FREQ:APPROXIMATELY 4-6 WEEKS FOR 8 INJECTIONS.
     Route: 050
  2. LEVOTHYROXINE. [Concomitant]
     Active Substance: LEVOTHYROXINE
     Route: 065
  3. CITRACAL [Concomitant]
     Active Substance: CALCIUM CITRATE
     Route: 065
  4. ATIVAN [Concomitant]
     Active Substance: LORAZEPAM
     Dosage: DRUG REPORTED AS ATIVAN PRX.
     Route: 065

REACTIONS (1)
  - Dermatitis [Recovering/Resolving]

NARRATIVE: CASE EVENT DATE: 20090728
